FAERS Safety Report 13614733 (Version 2)
Quarter: 2017Q2

REPORT INFORMATION
  Report Type: Spontaneous
  Country: US (occurrence: US)
  Receive Date: 20170606
  Receipt Date: 20170615
  Transmission Date: 20170830
  Serious: No
  Sender: FDA-Public Use
  Company Number: US-VERTEX PHARMACEUTICALS-2017-002978

PATIENT
  Age: 17 Year
  Sex: Male

DRUGS (3)
  1. VENTOLIN [Concomitant]
     Active Substance: ALBUTEROL SULFATE
  2. ORKAMBI [Suspect]
     Active Substance: IVACAFTOR\LUMACAFTOR
     Indication: CYSTIC FIBROSIS
     Dosage: 2 TABS(200/125MG EACH), BID
     Route: 048
     Dates: start: 20160805
  3. HYPERSAL [Concomitant]
     Route: 055

REACTIONS (1)
  - Aggression [Unknown]

NARRATIVE: CASE EVENT DATE: 201705
